FAERS Safety Report 7260962-4 (Version None)
Quarter: 2011Q1

REPORT INFORMATION
  Report Type: 
  Country: None (occurrence: None)
  Receive Date: 20110130
  Receipt Date: 20101123
  Transmission Date: 20110831
  Serious: No
  Sender: FDA-Public Use
  Company Number: US-ABBOTT-10P-163-0687382-00

PATIENT
  Sex: Female
  Weight: 140.74 kg

DRUGS (13)
  1. LISINOPRIL AND HYDROCHLOROTHIAZIDE [Concomitant]
     Indication: HYPERTENSION
  2. METHOTREXATE [Concomitant]
     Indication: PSORIASIS
     Dates: start: 20100216
  3. NOVOLOG [Concomitant]
     Indication: DIABETES MELLITUS
  4. ASPIRIN [Concomitant]
     Indication: PRODUCT USED FOR UNKNOWN INDICATION
  5. NORVASC [Concomitant]
     Indication: HYPERTENSION
  6. FISH OIL [Concomitant]
     Indication: PRODUCT USED FOR UNKNOWN INDICATION
  7. FOLIC ACID [Concomitant]
     Indication: PRODUCT USED FOR UNKNOWN INDICATION
  8. MULTI-VITAMIN [Concomitant]
     Indication: VITAMIN SUPPLEMENTATION
  9. VITAMIN D [Concomitant]
     Indication: VITAMIN SUPPLEMENTATION
  10. LIPITOR [Concomitant]
     Indication: BLOOD CHOLESTEROL INCREASED
  11. LANTUS [Concomitant]
     Indication: DIABETES MELLITUS
     Dosage: DAILY
  12. HUMIRA [Suspect]
     Indication: PSORIASIS
     Dates: start: 20100601
  13. PROAIR HFA [Concomitant]
     Indication: ASTHMA

REACTIONS (1)
  - CONTUSION [None]
